FAERS Safety Report 10006586 (Version 2)
Quarter: 2014Q2

REPORT INFORMATION
  Report Type: Report from Study
  Country: DE (occurrence: DE)
  Receive Date: 20140313
  Receipt Date: 20140407
  Transmission Date: 20141212
  Serious: Yes (Other)
  Sender: FDA-Public Use
  Company Number: DE-ABBVIE-14P-062-1210540-00

PATIENT
  Age: 24 Year
  Sex: Female
  Weight: 54 kg

DRUGS (6)
  1. HUMIRA [Suspect]
     Indication: CROHN^S DISEASE
     Route: 058
     Dates: start: 20101025, end: 20101025
  2. HUMIRA [Suspect]
     Route: 058
     Dates: start: 20101108, end: 20101108
  3. HUMIRA [Suspect]
     Route: 058
     Dates: start: 201011
  4. SULFASALAZINE [Concomitant]
     Indication: CROHN^S DISEASE
  5. SALOFALK [Concomitant]
     Indication: CROHN^S DISEASE
     Route: 048
     Dates: start: 20090702
  6. OMEP [Concomitant]
     Indication: GASTROOESOPHAGEAL REFLUX DISEASE
     Route: 048
     Dates: start: 20090702

REACTIONS (1)
  - Sudden hearing loss [Recovered/Resolved]
